FAERS Safety Report 18212788 (Version 2)
Quarter: 2020Q3

REPORT INFORMATION
  Report Type: Spontaneous
  Country: JP (occurrence: JP)
  Receive Date: 20200831
  Receipt Date: 20200909
  Transmission Date: 20201103
  Serious: Yes (Other)
  Sender: FDA-Public Use
  Company Number: JP-AMGEN-JPNSP2020032385

PATIENT

DRUGS (1)
  1. PANITUMUMAB [Suspect]
     Active Substance: PANITUMUMAB
     Indication: COLON CANCER
     Dosage: UNK
     Route: 050

REACTIONS (10)
  - Abscess [Unknown]
  - Rash pustular [Unknown]
  - Purpura [Unknown]
  - Pyrexia [Unknown]
  - Fatigue [Unknown]
  - Perforated ulcer [Unknown]
  - White blood cell count increased [Unknown]
  - C-reactive protein increased [Unknown]
  - Furuncle [Unknown]
  - Folliculitis [Unknown]
